FAERS Safety Report 8150471-2 (Version None)
Quarter: 2012Q1

REPORT INFORMATION
  Report Type: 
  Country: None (occurrence: None)
  Receive Date: 20120220
  Receipt Date: 20120213
  Transmission Date: 20120608
  Serious: Yes (Death, Hospitalization)
  Sender: FDA-Public Use
  Company Number: JP-AMGEN-JPNCT2010010682

PATIENT
  Age: 71 Year
  Sex: Female
  Weight: 46 kg

DRUGS (8)
  1. XGEVA [Suspect]
     Indication: OSTEOPOROSIS
     Dosage: 60 MG, Q6MO
     Route: 058
     Dates: start: 20100810, end: 20101218
  2. CALCIUM CARBONATE [Concomitant]
     Indication: OSTEOPOROSIS
     Route: 048
     Dates: start: 20080725, end: 20101213
  3. VOLTAREN [Concomitant]
     Indication: OSTEOARTHRITIS
     Dosage: OPTIMUM DOSE
     Route: 062
     Dates: start: 20091201, end: 20110315
  4. LOXONIN [Concomitant]
     Indication: OSTEOARTHRITIS
     Dosage: ARBITRARILY
     Route: 062
     Dates: start: 20091201, end: 20110315
  5. AMLODIPINE [Concomitant]
     Indication: HYPERTENSION
     Route: 048
     Dates: end: 20110619
  6. PRAVASTATIN SODIUM [Concomitant]
     Indication: HYPERLIPIDAEMIA
     Dosage: 5 MG, BID
     Route: 048
     Dates: start: 20100101
  7. CANDESARTAN CILEXETIL [Concomitant]
     Indication: HYPERTENSION
     Dosage: UNK
     Route: 048
     Dates: start: 20090423, end: 20110131
  8. MAGNESIUM OXIDE [Concomitant]
     Indication: CONSTIPATION
     Dosage: UNK
     Route: 048
     Dates: start: 20100727, end: 20110110

REACTIONS (1)
  - PANCREATIC CARCINOMA [None]
